FAERS Safety Report 21240888 (Version 5)
Quarter: 2023Q2

REPORT INFORMATION
  Report Type: Report from Study
  Country: US (occurrence: US)
  Receive Date: 20220823
  Receipt Date: 20230426
  Transmission Date: 20230721
  Serious: Yes (Death)
  Sender: FDA-Public Use
  Company Number: US-BIOGEN-2022BI01148737

PATIENT
  Age: 64 Year
  Sex: Female

DRUGS (2)
  1. TYSABRI [Suspect]
     Active Substance: NATALIZUMAB
     Indication: Multiple sclerosis
     Dosage: INFUSED OVER ONE HOUR
     Route: 050
     Dates: start: 20130311, end: 20220808
  2. TYSABRI [Suspect]
     Active Substance: NATALIZUMAB
     Route: 050
     Dates: start: 20070907, end: 20110818

REACTIONS (1)
  - Metastatic neoplasm [Fatal]

NARRATIVE: CASE EVENT DATE: 20220701
